FAERS Safety Report 15634878 (Version 1)
Quarter: 2018Q4

REPORT INFORMATION
  Report Type: Report from Study
  Country: TW (occurrence: TW)
  Receive Date: 20181119
  Receipt Date: 20181119
  Transmission Date: 20190205
  Serious: Yes (Other)
  Sender: FDA-Public Use
  Company Number: TW-INCYTE CORPORATION-2018IN011790

PATIENT

DRUGS (1)
  1. JAKAVI [Suspect]
     Active Substance: RUXOLITINIB
     Indication: MYELOFIBROSIS
     Dosage: 15 MG, BID
     Route: 048

REACTIONS (6)
  - Neuralgia [Unknown]
  - Hyperlipidaemia [Unknown]
  - Insomnia [Unknown]
  - Myeloproliferative neoplasm [Unknown]
  - Peptic ulcer [Unknown]
  - Diabetes mellitus [Unknown]
